FAERS Safety Report 7887934-0 (Version None)
Quarter: 2011Q4

REPORT INFORMATION
  Report Type: 
  Country: None (occurrence: None)
  Receive Date: 20111103
  Receipt Date: 20110808
  Transmission Date: 20120403
  Serious: Yes (Death)
  Sender: FDA-Public Use
  Company Number: US-ACTELION-A-US2011-52632

PATIENT

DRUGS (3)
  1. COUMADIN [Concomitant]
  2. VENTAVIS [Suspect]
     Indication: PULMONARY ARTERIAL HYPERTENSION
     Dosage: 10 UG, UNK
     Route: 055
     Dates: start: 20110502
  3. CALCIUM CHANNEL BLOCKERS [Concomitant]

REACTIONS (1)
  - PLEURAL EFFUSION [None]
